FAERS Safety Report 12796525 (Version 1)
Quarter: 2016Q3

REPORT INFORMATION
  Report Type: Spontaneous
  Country: US (occurrence: US)
  Receive Date: 20160929
  Receipt Date: 20160929
  Transmission Date: 20161109
  Serious: No
  Sender: FDA-Public Use
  Company Number: US-BAYER-2016-187359

PATIENT
  Age: 77 Year
  Sex: Male

DRUGS (5)
  1. METOPROLOL. [Concomitant]
     Active Substance: METOPROLOL
     Indication: STENT PLACEMENT
  2. CLOPIDOGREL [Concomitant]
     Active Substance: CLOPIDOGREL BISULFATE
     Indication: ARTERIAL THROMBOSIS
     Dosage: 75 MG, UNK
  3. CLOPIDOGREL [Concomitant]
     Active Substance: CLOPIDOGREL BISULFATE
     Indication: STENT PLACEMENT
  4. LEVITRA [Suspect]
     Active Substance: VARDENAFIL HYDROCHLORIDE TRIHYDRATE
     Indication: ERECTILE DYSFUNCTION
     Dosage: 20 MG, PRN
     Route: 048
     Dates: start: 20160922, end: 20160922
  5. METOPROLOL. [Concomitant]
     Active Substance: METOPROLOL
     Indication: ARTERIAL THROMBOSIS
     Dosage: 25 MG, UNK

REACTIONS (2)
  - Drug ineffective [None]
  - Intentional product use issue [None]

NARRATIVE: CASE EVENT DATE: 20160922
